FAERS Safety Report 7598467-3 (Version None)
Quarter: 2011Q3

REPORT INFORMATION
  Report Type: 
  Country: None (occurrence: None)
  Receive Date: 20110708
  Receipt Date: 20110629
  Transmission Date: 20111222
  Serious: Yes (Life-Threatening, Hospitalization)
  Sender: FDA-Public Use
  Company Number: CH-ELI_LILLY_AND_COMPANY-CH201107000283

PATIENT
  Sex: Female
  Weight: 80 kg

DRUGS (1)
  1. EFFIENT [Suspect]
     Indication: ANGINA PECTORIS
     Dosage: 60 MG, (LOADING DOSE)
     Route: 065
     Dates: start: 20110522, end: 20110629

REACTIONS (2)
  - URTICARIA [None]
  - PHOTOSENSITIVITY REACTION [None]
